FAERS Safety Report 8264002-X (Version None)
Quarter: 2012Q2

REPORT INFORMATION
  Report Type: 
  Country: None (occurrence: None)
  Receive Date: 20120406
  Receipt Date: 20120329
  Transmission Date: 20120825
  Serious: No
  Sender: FDA-Public Use
  Company Number: US-BIOGENIDEC-2011BI022852

PATIENT
  Sex: Male

DRUGS (1)
  1. TYSABRI [Suspect]
     Indication: MULTIPLE SCLEROSIS
     Route: 042
     Dates: start: 20081205

REACTIONS (6)
  - TREMOR [None]
  - MOBILITY DECREASED [None]
  - AGRAPHIA [None]
  - ASTHENIA [None]
  - MUSCULOSKELETAL STIFFNESS [None]
  - SPEECH DISORDER [None]
